FAERS Safety Report 13494818 (Version 3)
Quarter: 2017Q2

REPORT INFORMATION
  Report Type: Spontaneous
  Country: US (occurrence: US)
  Receive Date: 20170428
  Receipt Date: 20170529
  Transmission Date: 20170830
  Serious: No
  Sender: FDA-Public Use
  Company Number: US-PFIZER INC-2017185428

PATIENT
  Age: 63 Year
  Sex: Male
  Weight: 68.4 kg

DRUGS (3)
  1. OXCARBAZEPINE. [Concomitant]
     Active Substance: OXCARBAZEPINE
     Indication: SEIZURE
     Dosage: 300MG PLUS A 150MG TABLET IN THE MORNING AND ANOTHER 300MG TABLET IN THE EVENING
     Dates: start: 2012
  2. FORTEO [Concomitant]
     Active Substance: TERIPARATIDE
     Indication: BONE DISORDER
     Dosage: UNK UNK, 1X/DAY [SHOTS EVERY MORNING]
  3. NICOTROL [Suspect]
     Active Substance: NICOTINE
     Indication: SMOKING CESSATION THERAPY
     Dosage: 10MG CARTRIDGES AS NEEDED [INHALE AS NEEDED THROUGHOUT THE DAY AVERAGE OF 8 A DAY]
     Route: 055
     Dates: end: 201704

REACTIONS (5)
  - Cough [Recovered/Resolved]
  - Oropharyngeal pain [Recovered/Resolved]
  - Drug ineffective [Not Recovered/Not Resolved]
  - Sneezing [Recovering/Resolving]
  - Rhinorrhoea [Recovered/Resolved]

NARRATIVE: CASE EVENT DATE: 2016
